FAERS Safety Report 19988307 (Version 6)
Quarter: 2022Q2

REPORT INFORMATION
  Report Type: Spontaneous
  Country: JP (occurrence: JP)
  Receive Date: 20211022
  Receipt Date: 20220412
  Transmission Date: 20220721
  Serious: Yes (Death, Life-Threatening, Hospitalization, Other)
  Sender: FDA-Public Use
  Company Number: JP-JAZZ-2021-JP-018370

PATIENT
  Age: 29 Year
  Sex: Male
  Weight: 64.2 kg

DRUGS (11)
  1. DEFITELIO [Suspect]
     Active Substance: DEFIBROTIDE SODIUM
     Indication: Venoocclusive liver disease
     Dosage: 25 MG/KG (25 MG/KG/24 HOURS)
     Route: 042
     Dates: start: 20210917, end: 20210924
  2. DEFITELIO [Suspect]
     Active Substance: DEFIBROTIDE SODIUM
     Dosage: 25 MG/KG (25 MG/KG/24 HOURS)
     Route: 042
     Dates: start: 20210928, end: 20210930
  3. DEFITELIO [Suspect]
     Active Substance: DEFIBROTIDE SODIUM
     Dosage: 25 MG/KG (25 MG/KG/24 HOURS))
     Route: 042
     Dates: start: 20211011, end: 20211020
  4. THROMBOMODULIN ALFA [Concomitant]
     Active Substance: THROMBOMODULIN ALFA
     Indication: Product used for unknown indication
     Dosage: UNK
     Dates: start: 20210916, end: 20210917
  5. NEUART [Concomitant]
     Active Substance: ANTITHROMBIN III HUMAN
     Indication: Product used for unknown indication
     Dosage: UNK
     Dates: start: 20210916, end: 20210918
  6. NEUART [Concomitant]
     Active Substance: ANTITHROMBIN III HUMAN
     Dosage: UNK
     Dates: start: 20210920, end: 20210920
  7. NEUART [Concomitant]
     Active Substance: ANTITHROMBIN III HUMAN
     Dosage: UNK
     Dates: start: 20210922, end: 20210922
  8. NEUART [Concomitant]
     Active Substance: ANTITHROMBIN III HUMAN
     Dosage: UNK
     Dates: start: 20210924, end: 20210924
  9. NEUART [Concomitant]
     Active Substance: ANTITHROMBIN III HUMAN
     Dosage: UNK
     Dates: start: 20211013, end: 20211013
  10. LANSOPRAZOLE [Concomitant]
     Active Substance: LANSOPRAZOLE
     Indication: Duodenal ulcer
     Dosage: UNK
     Dates: start: 20211020
  11. THROMBIN [Concomitant]
     Active Substance: THROMBIN
     Indication: Duodenal ulcer
     Dosage: UNK
     Dates: start: 20211020

REACTIONS (9)
  - Venoocclusive liver disease [Fatal]
  - Disease progression [Fatal]
  - Oesophageal varices haemorrhage [Recovered/Resolved]
  - Hypotension [Not Recovered/Not Resolved]
  - Sepsis [Unknown]
  - Cerebral haemorrhage [Not Recovered/Not Resolved]
  - Duodenal ulcer [Not Recovered/Not Resolved]
  - Pulmonary haemorrhage [Recovered/Resolved]
  - Coagulation test abnormal [Unknown]

NARRATIVE: CASE EVENT DATE: 20210901
